FAERS Safety Report 17700135 (Version 1)
Quarter: 2020Q2

REPORT INFORMATION
  Report Type: Spontaneous
  Country: GB (occurrence: GB)
  Receive Date: 20200423
  Receipt Date: 20200423
  Transmission Date: 20200714
  Serious: Yes (Other)
  Sender: FDA-Public Use
  Company Number: GB-JNJFOC-20200424081

PATIENT
  Age: 50 Year
  Sex: Female
  Weight: 72.57 kg

DRUGS (1)
  1. SPORANOX [Suspect]
     Active Substance: ITRACONAZOLE
     Indication: FUNGAL SKIN INFECTION
     Route: 048
     Dates: start: 20200316, end: 20200405

REACTIONS (1)
  - Palpitations [Recovering/Resolving]

NARRATIVE: CASE EVENT DATE: 20200325
